FAERS Safety Report 10919878 (Version 2)
Quarter: 2015Q1

REPORT INFORMATION
  Report Type: Spontaneous
  Country: JP (occurrence: JP)
  Receive Date: 20150317
  Receipt Date: 20150320
  Transmission Date: 20150721
  Serious: Yes (Death, Other)
  Sender: FDA-Public Use
  Company Number: JP-ROCHE-1552126

PATIENT
  Age: 61 Year
  Sex: Male

DRUGS (4)
  1. BUSULFAN [Concomitant]
     Active Substance: BUSULFAN
     Dosage: DOSAGE IS UNCERTAIN.
     Route: 065
  2. CELLCEPT [Suspect]
     Active Substance: MYCOPHENOLATE MOFETIL\MYCOPHENOLATE MOFETIL HYDROCHLORIDE
     Indication: STEM CELL TRANSPLANT
     Dosage: DOSAGE IS UNCERTAIN.
     Route: 048
  3. TACROLIMUS HYDRATE [Concomitant]
     Active Substance: TACROLIMUS
     Dosage: DOSAGE IS UNCERTAIN.
     Route: 065
  4. FLUDARABINE PHOSPHATE. [Concomitant]
     Active Substance: FLUDARABINE PHOSPHATE
     Dosage: DOSAGE IS UNCERTAIN.
     Route: 065

REACTIONS (4)
  - Platelet count decreased [Unknown]
  - Product use issue [Unknown]
  - Idiopathic pneumonia syndrome [Unknown]
  - Endocarditis noninfective [Fatal]
